FAERS Safety Report 5926368-2 (Version None)
Quarter: 2008Q4

REPORT INFORMATION
  Report Type: 
  Country: None (occurrence: None)
  Receive Date: 20081022
  Receipt Date: 20081014
  Transmission Date: 20090506
  Serious: Yes (Other)
  Sender: FDA-Public Use
  Company Number: US-BAYER-200812752BCC

PATIENT
  Age: 59 Year
  Sex: Male
  Weight: 149 kg

DRUGS (10)
  1. EXTRA STRENGTH BAYER BACK + BODY PAIN CAPLETS [Suspect]
     Indication: ARTHRALGIA
     Dosage: AS USED: 2 DF
     Route: 048
  2. EXTRA STRENGTH BAYER BACK + BODY PAIN CAPLETS [Suspect]
     Dosage: AS USED: 1 DF
     Route: 048
  3. EXTRA STRENGTH BAYER BACK + BODY PAIN CAPLETS [Suspect]
     Dosage: AS USED: 1 DF
     Route: 048
     Dates: start: 20080706
  4. ASPIRIN [Suspect]
     Indication: DRUG USE FOR UNKNOWN INDICATION
     Route: 048
  5. ASPIRIN [Suspect]
  6. LISINOPRIL [Concomitant]
  7. PIROXICAM [Concomitant]
  8. WATER PILL [Concomitant]
  9. PENBROFOSIN [Concomitant]
  10. HIGH BLOOD PRESSURE MEDICATION [Concomitant]

REACTIONS (1)
  - HAEMATOCHEZIA [None]
